FAERS Safety Report 7551532-9 (Version None)
Quarter: 2011Q2

REPORT INFORMATION
  Report Type: 
  Country: None (occurrence: None)
  Receive Date: 20110616
  Receipt Date: 20110603
  Transmission Date: 20111010
  Serious: Yes (Hospitalization)
  Sender: FDA-Public Use
  Company Number: PHHY2011BR06054

PATIENT
  Sex: Male

DRUGS (6)
  1. LIPITOR [Concomitant]
     Indication: DEMENTIA
     Dosage: 2 DF, QD
     Route: 048
     Dates: start: 20090101
  2. ATENOLOL [Concomitant]
     Dosage: 1 DF, QD
     Route: 048
     Dates: start: 19810101
  3. EXELON [Suspect]
     Indication: DEMENTIA
     Dosage: 9MG/5CM^2 PER DAY
     Route: 062
     Dates: start: 20101101, end: 20101217
  4. EXELON [Suspect]
     Dosage: 18MG/10CM^2 PER DAY
     Route: 062
     Dates: start: 20101201
  5. MEMANTINE HYDROCHLORIDE [Concomitant]
     Indication: DEMENTIA
     Dosage: 2 DF, QD
     Route: 048
  6. LEVOTHYROXINE SODIUM [Concomitant]
     Indication: DEMENTIA
     Dosage: 1 DF, QD
     Route: 048
     Dates: start: 20090101

REACTIONS (3)
  - FALL [None]
  - FEMUR FRACTURE [None]
  - SALIVARY HYPERSECRETION [None]
